FAERS Safety Report 6232434-7 (Version None)
Quarter: 2009Q2

REPORT INFORMATION
  Report Type: 
  Country: None (occurrence: None)
  Receive Date: 20090617
  Receipt Date: 20090526
  Transmission Date: 20091009
  Serious: Yes (Other)
  Sender: FDA-Public Use
  Company Number: CA-JNJFOC-20090404699

PATIENT
  Sex: Female

DRUGS (2)
  1. RETIN-A MICRO [Suspect]
     Indication: ACNE
     Route: 061
  2. VITAMIN C ESTER CREAM [Concomitant]

REACTIONS (5)
  - CUTIS LAXA [None]
  - LIP DISORDER [None]
  - RHINALGIA [None]
  - SKIN DISCOLOURATION [None]
  - SKIN DISORDER [None]
